FAERS Safety Report 7386586-6 (Version None)
Quarter: 2011Q1

REPORT INFORMATION
  Report Type: 
  Country: None (occurrence: None)
  Receive Date: 20110331
  Receipt Date: 20110325
  Transmission Date: 20110831
  Serious: Yes (Death, Hospitalization)
  Sender: FDA-Public Use
  Company Number: ES-ROCHE-762309

PATIENT
  Sex: Male
  Weight: 102 kg

DRUGS (5)
  1. KARVEZIDE [Concomitant]
     Dosage: HYDROCHLORTHIAZIDE 12.5 MG IRBESARTAN 300 MG
     Dates: start: 20000101
  2. BEVACIZUMAB [Suspect]
     Indication: COLORECTAL CANCER
     Route: 042
     Dates: start: 20110209, end: 20110216
  3. IRINOTECAN HCL [Suspect]
     Indication: COLORECTAL CANCER
     Route: 042
     Dates: start: 20110209, end: 20110216
  4. AMLODIPINO [Concomitant]
     Dates: start: 20100101
  5. CAPECITABINE [Suspect]
     Indication: COLORECTAL CANCER
     Dosage: FREQUENCY : 12 HOURS X 14 DAYS
     Route: 048
     Dates: start: 20110209, end: 20110216

REACTIONS (1)
  - MENINGITIS BACTERIAL [None]
